FAERS Safety Report 6143243-1 (Version None)
Quarter: 2009Q2

REPORT INFORMATION
  Report Type: 
  Country: None (occurrence: None)
  Receive Date: 20090403
  Receipt Date: 20090327
  Transmission Date: 20091009
  Serious: Yes (Other)
  Sender: FDA-Public Use
  Company Number: CA-MERCK-0903CAN00101

PATIENT

DRUGS (3)
  1. ISENTRESS [Suspect]
     Route: 048
  2. DARUNAVIR [Concomitant]
     Route: 065
  3. ETRAVIRINE [Concomitant]
     Route: 065

REACTIONS (1)
  - HEPATIC FAILURE [None]
